FAERS Safety Report 10657411 (Version 1)
Quarter: 2014Q4

REPORT INFORMATION
  Report Type: Spontaneous
  Country: US (occurrence: None)
  Receive Date: 20141216
  Receipt Date: 20141216
  Transmission Date: 20150529
  Serious: Yes (Other)
  Sender: FDA-Public Use
  Company Number: None

PATIENT
  Age: 52 Year
  Sex: Female

DRUGS (1)
  1. EXJADE [Suspect]
     Active Substance: DEFERASIROX
     Indication: PORPHYRIN METABOLISM DISORDER
     Route: 048
     Dates: start: 20140722

REACTIONS (3)
  - Abasia [None]
  - Muscle spasms [None]
  - Loose tooth [None]

NARRATIVE: CASE EVENT DATE: 20141201
